FAERS Safety Report 26185640 (Version 1)
Quarter: 2025Q4

REPORT INFORMATION
  Report Type: Spontaneous
  Country: US (occurrence: None)
  Receive Date: 20251219
  Receipt Date: 20251219
  Transmission Date: 20260117
  Serious: Yes (Disabling)
  Sender: FDA-CTU
  Company Number: None

PATIENT
  Age: 62 Year
  Sex: Female
  Weight: 90 kg

DRUGS (15)
  1. OZEMPIC [Suspect]
     Active Substance: SEMAGLUTIDE
     Indication: Diabetes mellitus
     Dates: start: 20241210, end: 20250107
  2. Dicylomine [Concomitant]
  3. BISOPROLOL FUMARATE [Concomitant]
     Active Substance: BISOPROLOL FUMARATE
  4. CLARINEX [Concomitant]
     Active Substance: DESLORATADINE
  5. LOSARTAN [Concomitant]
     Active Substance: LOSARTAN
  6. HYDROCHLOROTHIAZIDE [Concomitant]
     Active Substance: HYDROCHLOROTHIAZIDE
  7. DILTIAZEM [Concomitant]
     Active Substance: DILTIAZEM
  8. GLIPIZIDE [Concomitant]
     Active Substance: GLIPIZIDE
  9. METFORMIN [Concomitant]
     Active Substance: METFORMIN HYDROCHLORIDE
  10. Roustatin [Concomitant]
  11. Astelyn [Concomitant]
  12. VITAMIN D [Concomitant]
     Active Substance: VITAMIN D NOS
  13. FLONASE [Concomitant]
     Active Substance: FLUTICASONE PROPIONATE
  14. Vitamin for Eye Health [Concomitant]
  15. VITAMIN C [Concomitant]
     Active Substance: ASCORBIC ACID

REACTIONS (3)
  - Eye haemorrhage [None]
  - Retinal oedema [None]
  - Retinal vein occlusion [None]

NARRATIVE: CASE EVENT DATE: 20250110
